FAERS Safety Report 22133230 (Version 2)
Quarter: 2023Q2

REPORT INFORMATION
  Report Type: Report from Study
  Country: US (occurrence: US)
  Receive Date: 20230324
  Receipt Date: 20230605
  Transmission Date: 20230722
  Serious: Yes (Other)
  Sender: FDA-Public Use
  Company Number: US-ABBVIE-4697077

PATIENT
  Sex: Female

DRUGS (2)
  1. IMBRUVICA [Suspect]
     Active Substance: IBRUTINIB
     Indication: Waldenstrom^s macroglobulinaemia
     Route: 048
     Dates: start: 201804
  2. RITUXAN [Suspect]
     Active Substance: RITUXIMAB
     Indication: Product used for unknown indication
     Route: 065

REACTIONS (9)
  - Anaphylactic reaction [Unknown]
  - Fall [Unknown]
  - Scab [Unknown]
  - Wound secretion [Unknown]
  - Haematoma [Unknown]
  - Skin haemorrhage [Unknown]
  - Skin laceration [Unknown]
  - Skin discolouration [Unknown]
  - Scar [Unknown]

NARRATIVE: CASE EVENT DATE: 20180101
